FAERS Safety Report 10466491 (Version 6)
Quarter: 2015Q1

REPORT INFORMATION
  Report Type: Report from Study
  Country: BR (occurrence: BR)
  Receive Date: 20140922
  Receipt Date: 20150122
  Transmission Date: 20150720
  Serious: Yes (Other)
  Sender: FDA-Public Use
  Company Number: PHHY2014BR119773

PATIENT
  Age: 61 Year
  Sex: Female
  Weight: 61 kg

DRUGS (23)
  1. AFINITOR [Suspect]
     Active Substance: EVEROLIMUS
     Indication: CARCINOID TUMOUR
     Dosage: 1 DF, QHS
     Route: 065
     Dates: end: 20140904
  2. AFINITOR [Suspect]
     Active Substance: EVEROLIMUS
     Dosage: 1 DF, QD
     Route: 065
     Dates: start: 20140107, end: 20140904
  3. BENESTARE [Concomitant]
     Indication: DIARRHOEA
     Dosage: 3 DF, QD
     Route: 065
  4. TREZOR [Concomitant]
     Active Substance: ROSUVASTATIN CALCIUM
     Indication: BLOOD CHOLESTEROL
     Route: 065
     Dates: start: 20140218
  5. DEPURA [Concomitant]
     Active Substance: CHOLECALCIFEROL
     Indication: VITAMIN D
     Dosage: 10 DROPS PER DAY
     Route: 065
  6. SANDOSTATIN LAR DEPOT [Suspect]
     Active Substance: OCTREOTIDE ACETATE
     Indication: NEUROENDOCRINE TUMOUR
     Dosage: 20 MG, QMO
     Route: 065
     Dates: start: 200811
  7. DIOVAN HCT [Suspect]
     Active Substance: HYDROCHLOROTHIAZIDE\VALSARTAN
     Indication: HYPERTENSION
     Dosage: 1 DF, QD (IN THE MORNING AFTER BREAKFAST)
     Route: 065
  8. MEDILET [Concomitant]
     Indication: HYPERTENSION
     Dosage: 1 DF, IN THE MORNING
     Route: 065
  9. NEBILET [Concomitant]
     Active Substance: NEBIVOLOL
     Indication: HYPERTENSION
     Dosage: 1 DF, AFTER THE COFFEE
     Route: 065
  10. VITAMIN D [Concomitant]
     Active Substance: CHOLECALCIFEROL
     Indication: VITAMIN D ABNORMAL
     Dosage: 1 DF, IN THE MORNING
     Route: 065
  11. CROSSA [Concomitant]
     Indication: OSTEOPOROSIS
     Route: 065
  12. SANDOSTATIN LAR DEPOT [Suspect]
     Active Substance: OCTREOTIDE ACETATE
     Indication: CARCINOID TUMOUR
     Dosage: 30 MG, QMO
     Route: 065
     Dates: end: 20130915
  13. SANDOSTATIN LAR DEPOT [Suspect]
     Active Substance: OCTREOTIDE ACETATE
     Dosage: 20 MG, QMO
     Route: 065
     Dates: start: 20131015
  14. LEVOID [Concomitant]
     Active Substance: LEVOTHYROXINE
     Indication: THYROID DISORDER
     Dosage: 1 DF, AT FASTING CONDITON
     Route: 065
  15. GLIMEPIRIDE. [Concomitant]
     Active Substance: GLIMEPIRIDE
     Indication: HYPERGLYCAEMIA
     Route: 065
  16. NIFEDIPINE - SLOW RELEASE [Concomitant]
     Active Substance: NIFEDIPINE
     Indication: PERIPHERAL SWELLING
     Dosage: 2 DF, QD
     Route: 065
  17. OMEPRAZOLE. [Concomitant]
     Active Substance: OMEPRAZOLE
     Indication: REFLUX GASTRITIS
     Dosage: 1 DF, IN THE MORNING
     Route: 065
  18. LIPLESS [Concomitant]
     Active Substance: CIPROFIBRATE
     Indication: BLOOD CHOLESTEROL ABNORMAL
     Route: 065
  19. SANDOSTATIN LAR DEPOT [Suspect]
     Active Substance: OCTREOTIDE ACETATE
     Dosage: 40 MG, EACH 28 DAYS
     Route: 065
     Dates: start: 201309
  20. AFINITOR [Suspect]
     Active Substance: EVEROLIMUS
     Indication: NEUROENDOCRINE TUMOUR
     Dosage: 1 DF, QHS
     Route: 065
     Dates: start: 20140107
  21. NIFEDIPINE - SLOW RELEASE [Concomitant]
     Active Substance: NIFEDIPINE
     Indication: HYPERTENSION
     Dosage: 1 DF, AT COFFEE AND AT NIGHT
     Route: 065
     Dates: start: 20141014
  22. NATRILIX - SLOW RELEASE [Concomitant]
     Active Substance: INDAPAMIDE
     Indication: HYPERTENSION
     Dosage: 1 DF, QD (AFTER LUNCH)
     Route: 065
     Dates: start: 20141015
  23. LANSOPRAZOLE. [Concomitant]
     Active Substance: LANSOPRAZOLE
     Indication: GASTROOESOPHAGEAL REFLUX DISEASE
     Dosage: 1 DF, AT FASTING CONDITION
     Route: 065

REACTIONS (29)
  - Diarrhoea [Recovering/Resolving]
  - Glucose tolerance impaired [Recovering/Resolving]
  - Wheezing [Recovering/Resolving]
  - Metastasis [Unknown]
  - Abdominal pain [Recovering/Resolving]
  - Secretion discharge [Recovering/Resolving]
  - Arthralgia [Recovering/Resolving]
  - Incisional hernia [Recovering/Resolving]
  - Gastrointestinal disorder [Unknown]
  - Anaemia [Recovered/Resolved]
  - Blood pressure systolic increased [Unknown]
  - Haemorrhoids [Recovering/Resolving]
  - Back pain [Unknown]
  - Weight decreased [Recovering/Resolving]
  - Blood cholesterol increased [Recovering/Resolving]
  - Emotional disorder [Unknown]
  - Anal pruritus [Recovering/Resolving]
  - Joint swelling [Recovering/Resolving]
  - Muscle spasms [Unknown]
  - Blood pressure fluctuation [Unknown]
  - Weight increased [Recovered/Resolved]
  - Wound [Recovering/Resolving]
  - Burning sensation [Recovering/Resolving]
  - Peripheral swelling [Recovered/Resolved]
  - Blood triglycerides increased [Recovering/Resolving]
  - Hernia [Unknown]
  - Pneumonia [Recovered/Resolved]
  - Inflammation [Recovering/Resolving]
  - Dizziness [Recovered/Resolved]

NARRATIVE: CASE EVENT DATE: 201401
